FAERS Safety Report 23018962 (Version 1)
Quarter: 2023Q4

REPORT INFORMATION
  Report Type: Spontaneous
  Country: US (occurrence: US)
  Receive Date: 20231003
  Receipt Date: 20231003
  Transmission Date: 20240110
  Serious: Yes (Hospitalization, Other)
  Sender: FDA-Public Use
  Company Number: US-NOVOPROD-1119198

PATIENT
  Age: 55 Year
  Sex: Female

DRUGS (1)
  1. SAXENDA [Suspect]
     Active Substance: LIRAGLUTIDE
     Indication: Weight control
     Dosage: 1.8 MG, QD
     Route: 058

REACTIONS (4)
  - Intestinal obstruction [Not Recovered/Not Resolved]
  - Hospitalisation [Recovered/Resolved]
  - Hyperhidrosis [Recovered/Resolved]
  - Skin odour abnormal [Recovered/Resolved]

NARRATIVE: CASE EVENT DATE: 20230901
